FAERS Safety Report 5930829-X (Version None)
Quarter: 2008Q4

REPORT INFORMATION
  Report Type: 
  Country: None (occurrence: None)
  Receive Date: 20081002
  Receipt Date: 20080321
  Transmission Date: 20090506
  Serious: Yes (Other)
  Sender: FDA-Public Use
  Company Number: 2008-0015831

PATIENT
  Age: 60 Year
  Sex: Female

DRUGS (1)
  1. TRUVADA [Suspect]

REACTIONS (1)
  - RENAL FAILURE [None]
